FAERS Safety Report 13707515 (Version 1)
Quarter: 2017Q2

REPORT INFORMATION
  Report Type: Report from Study
  Country: None (occurrence: BR)
  Receive Date: 20170630
  Receipt Date: 20170630
  Transmission Date: 20170830
  Serious: Yes (Other)
  Sender: FDA-Public Use
  Company Number: BR-ABBVIE-17K-020-2022459-00

PATIENT
  Age: 30 Year
  Sex: Female
  Weight: 73 kg

DRUGS (3)
  1. HUMIRA [Suspect]
     Active Substance: ADALIMUMAB
     Route: 058
  2. HUMIRA [Suspect]
     Active Substance: ADALIMUMAB
     Indication: PSORIASIS
     Route: 058
     Dates: start: 20140101
  3. HUMIRA [Suspect]
     Active Substance: ADALIMUMAB
     Route: 058

REACTIONS (10)
  - Malaise [Not Recovered/Not Resolved]
  - Procedural pain [Unknown]
  - Post procedural haemorrhage [Recovered/Resolved]
  - Anxiety [Unknown]
  - Panic disorder [Unknown]
  - Hypertension [Recovered/Resolved]
  - Glucose tolerance impaired [Recovered/Resolved]
  - Hepatic steatosis [Unknown]
  - Psoriasis [Unknown]
  - Psoriasis [Recovered/Resolved]

NARRATIVE: CASE EVENT DATE: 201612
